FAERS Safety Report 25381042 (Version 1)
Quarter: 2025Q2

REPORT INFORMATION
  Report Type: Spontaneous
  Country: US (occurrence: US)
  Receive Date: 20250530
  Receipt Date: 20250530
  Transmission Date: 20250716
  Serious: No
  Sender: INCYTE
  Company Number: US-EVENT-002778

PATIENT
  Age: 61 Year

DRUGS (4)
  1. OPZELURA [Suspect]
     Active Substance: RUXOLITINIB PHOSPHATE
     Indication: Lichen planus
     Dosage: 1.5 PERCENT TWICE DAILY TO THE AFFECTED ORAL  MUCOSA
     Route: 065
  2. BARICITINIB [Concomitant]
     Active Substance: BARICITINIB
     Indication: Lichen planus
  3. BARICITINIB [Concomitant]
     Active Substance: BARICITINIB
  4. PREDNISONE [Concomitant]
     Active Substance: PREDNISONE
     Indication: Lichen planus
     Route: 065

REACTIONS (4)
  - Lichen planus [Recovered/Resolved]
  - Product availability issue [Unknown]
  - Drug effective for unapproved indication [Unknown]
  - Off label use [Unknown]
